FAERS Safety Report 17149863 (Version 2)
Quarter: 2019Q4

REPORT INFORMATION
  Report Type: Spontaneous
  Country: BR (occurrence: BR)
  Receive Date: 20191213
  Receipt Date: 20191223
  Transmission Date: 20200122
  Serious: Yes (Other)
  Sender: FDA-Public Use
  Company Number: NVSC2019BR034907

PATIENT
  Age: 66 Year
  Sex: Female
  Weight: 58 kg

DRUGS (6)
  1. HEMAX [Concomitant]
     Indication: VERTEBRAL ARTERY HYPOPLASIA
     Dosage: UNK UNK, QMO (2 AMPOULES) 14 YEARS AGO
     Route: 058
  2. LASIX [Concomitant]
     Active Substance: FUROSEMIDE
     Indication: PROPHYLAXIS
     Dosage: 2 DF, QD (MANY YEARS AGO)
     Route: 048
  3. CONCOR [Concomitant]
     Active Substance: BISOPROLOL FUMARATE
     Indication: BUNDLE BRANCH BLOCK LEFT
     Dosage: 1 DF, QD (16 YEARS AGO)
     Route: 048
  4. ENTRESTO [Suspect]
     Active Substance: SACUBITRIL\VALSARTAN
     Indication: BUNDLE BRANCH BLOCK LEFT
     Dosage: 4 DF, QD (49/51 MG)
     Route: 065
  5. ENTRESTO [Suspect]
     Active Substance: SACUBITRIL\VALSARTAN
     Dosage: 200 MG (97 MG/103 MG), BID
     Route: 048
  6. FOLIC ACID. [Concomitant]
     Active Substance: FOLIC ACID
     Indication: RENAL FAILURE
     Dosage: 1 DF (DAY IN DAY OUT)
     Route: 048
     Dates: start: 2008

REACTIONS (4)
  - Dyspnoea [Recovering/Resolving]
  - Inappropriate schedule of product administration [Unknown]
  - Product use in unapproved indication [Unknown]
  - Angina pectoris [Recovering/Resolving]

NARRATIVE: CASE EVENT DATE: 20191007
